FAERS Safety Report 9255243 (Version 2)
Quarter: 2014Q1

REPORT INFORMATION
  Report Type: Spontaneous
  Country: US (occurrence: None)
  Receive Date: 20121212
  Receipt Date: 20130314
  Transmission Date: 20141002
  Serious: No
  Sender: FDA-Public Use
  Company Number: 1209USA010684

PATIENT
  Age: 51 Year
  Sex: Male

DRUGS (3)
  1. PEGINTRON [Suspect]
     Indication: HEPATITIS C
     Dates: start: 20120824, end: 20130130
  2. RIBAVIRIN [Suspect]
     Indication: HEPATITIS C
     Dates: start: 20120824, end: 20130130
  3. VICTRELIS [Suspect]
     Indication: HEPATITIS C
     Dosage: UNK
     Dates: start: 20120921, end: 20130130

REACTIONS (9)
  - Headache [None]
  - Heart rate increased [None]
  - Thrombocytopenia [None]
  - Platelet count decreased [None]
  - Leukopenia [None]
  - White blood cell count decreased [None]
  - Dizziness [None]
  - Tachycardia [None]
  - Hypotension [None]
